FAERS Safety Report 23233279 (Version 1)
Quarter: 2023Q4

REPORT INFORMATION
  Report Type: Spontaneous
  Country: JP (occurrence: None)
  Receive Date: 20231128
  Receipt Date: 20231128
  Transmission Date: 20240109
  Serious: Yes (Other)
  Sender: FDA-Public Use
  Company Number: JP-ABBVIE-5506793

PATIENT
  Age: 40 Year
  Sex: Male

DRUGS (1)
  1. CYCLOSPORINE [Suspect]
     Active Substance: CYCLOSPORINE
     Indication: Alport^s syndrome
     Route: 048

REACTIONS (3)
  - Osteonecrosis [Unknown]
  - Off label use [Unknown]
  - Renal impairment [Not Recovered/Not Resolved]
